FAERS Safety Report 26103786 (Version 2)
Quarter: 2025Q4

REPORT INFORMATION
  Report Type: Report from Study
  Country: CA (occurrence: CA)
  Receive Date: 20251129
  Receipt Date: 20251211
  Transmission Date: 20260118
  Serious: Yes (Other)
  Sender: CELLTRION
  Company Number: CA-CELLTRION INC.-2025CA037536

PATIENT

DRUGS (2)
  1. INFLIXIMAB-DYYB [Suspect]
     Active Substance: INFLIXIMAB-DYYB
     Indication: Ankylosing spondylitis
     Dosage: MAINTENANCE - 5 MG/KG, EVERY 6 WEEKS
     Route: 042
     Dates: start: 20251008
  2. INFLIXIMAB-DYYB [Suspect]
     Active Substance: INFLIXIMAB-DYYB
     Dosage: MAINTENANCE - 5 MG/KG - IV (INTRAVENOUS) EVERY 6 WEEKS
     Route: 042
     Dates: start: 20251203

REACTIONS (4)
  - Myalgia [Unknown]
  - Dyspnoea [Unknown]
  - Asthenia [Unknown]
  - Inappropriate schedule of product administration [Unknown]
